FAERS Safety Report 7410632-4 (Version None)
Quarter: 2011Q1

REPORT INFORMATION
  Report Type: 
  Country: None (occurrence: None)
  Receive Date: 20110302
  Receipt Date: 20110118
  Transmission Date: 20110831
  Serious: No
  Sender: FDA-Public Use
  Company Number: 025786

PATIENT
  Sex: Male
  Weight: 62.5964 kg

DRUGS (8)
  1. LORAZEPAM [Concomitant]
  2. CIMZIA [Suspect]
     Indication: CROHN'S DISEASE
     Dosage: 400 MG 1X/MONTH SUBCUTANEOUS
     Route: 058
     Dates: start: 20090101
  3. OXYCODONE HCL [Concomitant]
  4. FENTANYL [Concomitant]
  5. CARAFATE [Concomitant]
  6. ERYTHROCIN LACTOBIONATE [Concomitant]
  7. AZATHIOPRINE [Concomitant]
  8. VITAMINS NOS [Concomitant]

REACTIONS (2)
  - INFLUENZA LIKE ILLNESS [None]
  - PYREXIA [None]
